FAERS Safety Report 17571975 (Version 1)
Quarter: 2020Q1

REPORT INFORMATION
  Report Type: Spontaneous
  Country: US (occurrence: US)
  Receive Date: 20200323
  Receipt Date: 20200323
  Transmission Date: 20200409
  Serious: No
  Sender: FDA-Public Use
  Company Number: US-GLAXOSMITHKLINE-US2020GSK046611

PATIENT
  Sex: Female

DRUGS (2)
  1. VARUBI [Suspect]
     Active Substance: ROLAPITANT
     Indication: PLASMA CELL MYELOMA
     Dosage: 2 DF (TAKE 2 TABLETS BY MOUTH ONCE EVERY 2)
     Route: 048
  2. ZOFRAN [Suspect]
     Active Substance: ONDANSETRON HYDROCHLORIDE
     Indication: PRODUCT USED FOR UNKNOWN INDICATION
     Dosage: UNK

REACTIONS (1)
  - Weight decreased [Unknown]
